FAERS Safety Report 6309875-2 (Version None)
Quarter: 2009Q3

REPORT INFORMATION
  Report Type: 
  Country: None (occurrence: None)
  Receive Date: 20090814
  Receipt Date: 20090805
  Transmission Date: 20100115
  Serious: Yes (Hospitalization)
  Sender: FDA-Public Use
  Company Number: PL-AMGEN-UK352422

PATIENT
  Sex: Male

DRUGS (1)
  1. PANITUMUMAB [Suspect]
     Indication: COLORECTAL CANCER
     Route: 042
     Dates: start: 20061219, end: 20070719

REACTIONS (3)
  - COLORECTAL CANCER METASTATIC [None]
  - INFLAMMATION OF WOUND [None]
  - MALIGNANT NEOPLASM PROGRESSION [None]
